FAERS Safety Report 22042333 (Version 1)
Quarter: 2023Q1

REPORT INFORMATION
  Report Type: Spontaneous
  Country: CA (occurrence: CA)
  Receive Date: 20230227
  Receipt Date: 20230227
  Transmission Date: 20230417
  Serious: Yes (Hospitalization)
  Sender: FDA-Public Use
  Company Number: CA-009507513-2302CAN007669

PATIENT
  Age: 44 Year
  Sex: Female

DRUGS (1)
  1. JANUMET XR [Suspect]
     Active Substance: METFORMIN HYDROCHLORIDE\SITAGLIPTIN PHOSPHATE
     Indication: Diabetes mellitus
     Dosage: 2 DOSAGE FORM, 1 EVERY 1 DAYS
     Route: 048

REACTIONS (7)
  - Abdominal pain upper [Recovered/Resolved]
  - Colitis [Recovered/Resolved]
  - Diarrhoea [Recovered/Resolved]
  - Faeces soft [Recovered/Resolved]
  - Feeding disorder [Recovered/Resolved]
  - Flank pain [Recovered/Resolved]
  - Pancreatitis [Recovered/Resolved]
